FAERS Safety Report 11423680 (Version 1)
Quarter: 2015Q3

REPORT INFORMATION
  Report Type: Spontaneous
  Country: US (occurrence: US)
  Receive Date: 20150827
  Receipt Date: 20150827
  Transmission Date: 20151125
  Serious: No
  Sender: FDA-Public Use
  Company Number: US-JNJFOC-20150208539

PATIENT
  Sex: Female
  Weight: 45.36 kg

DRUGS (4)
  1. REMICADE [Concomitant]
     Active Substance: INFLIXIMAB
     Indication: CROHN^S DISEASE
     Route: 042
     Dates: start: 201306, end: 201312
  2. REMICADE [Concomitant]
     Active Substance: INFLIXIMAB
     Indication: CROHN^S DISEASE
     Route: 042
     Dates: start: 2002
  3. BENADRYL [Suspect]
     Active Substance: DIPHENHYDRAMINE HYDROCHLORIDE
     Indication: UNEVALUABLE EVENT
     Route: 065
     Dates: start: 201306, end: 201312
  4. MOTRIN [Suspect]
     Active Substance: IBUPROFEN
     Indication: UNEVALUABLE EVENT
     Route: 065
     Dates: start: 201306, end: 201312

REACTIONS (2)
  - Product use issue [Unknown]
  - Drug ineffective [Unknown]
